FAERS Safety Report 4330248-6 (Version None)
Quarter: 2004Q1

REPORT INFORMATION
  Report Type: 
  Country: None (occurrence: None)
  Receive Date: 20040329
  Receipt Date: 20040312
  Transmission Date: 20041129
  Serious: Yes (Hospitalization)
  Sender: FDA-Public Use
  Company Number: DSA_24097_2004

PATIENT
  Age: 29 Year
  Sex: Female

DRUGS (2)
  1. LORAZEPAM [Suspect]
     Dosage: 12 MG ONCE PO
     Route: 048
     Dates: start: 20040308, end: 20040308
  2. ALCOHOL [Suspect]
     Dosage: 0.3 L ONCE PO
     Route: 048
     Dates: start: 20040308, end: 20040308

REACTIONS (3)
  - DEPRESSED LEVEL OF CONSCIOUSNESS [None]
  - INTENTIONAL OVERDOSE [None]
  - VOMITING [None]
